FAERS Safety Report 6845226-2 (Version None)
Quarter: 2010Q3

REPORT INFORMATION
  Report Type: 
  Country: None (occurrence: None)
  Receive Date: 20100715
  Receipt Date: 20070815
  Transmission Date: 20110219
  Serious: No
  Sender: FDA-Public Use
  Company Number: US-PFIZER INC-2007068844

PATIENT
  Sex: Female
  Weight: 68.2 kg

DRUGS (5)
  1. CHANTIX [Suspect]
     Indication: SMOKING CESSATION THERAPY
     Dates: start: 20070801
  2. ZYBAN [Concomitant]
  3. PREVACID [Concomitant]
  4. HYDROCHLOROTHIAZIDE [Concomitant]
     Indication: BLOOD PRESSURE ABNORMAL
  5. ALL OTHER THERAPEUTIC PRODUCTS [Concomitant]
     Indication: DEPRESSION

REACTIONS (1)
  - NAUSEA [None]
